FAERS Safety Report 8134293-4 (Version None)
Quarter: 2012Q1

REPORT INFORMATION
  Report Type: 
  Country: None (occurrence: None)
  Receive Date: 20120208
  Receipt Date: 20120126
  Transmission Date: 20120608
  Serious: Yes (Other)
  Sender: FDA-Public Use
  Company Number: KAD201201-000114

PATIENT
  Age: 49 Year
  Sex: Male

DRUGS (2)
  1. PEGINTERFERON ALFA-2A [Suspect]
     Dates: start: 20050501
  2. RIBAVIRIN [Suspect]
     Dates: start: 20050501

REACTIONS (2)
  - AUTOIMMUNE HEPATITIS [None]
  - PANCYTOPENIA [None]
